FAERS Safety Report 6619265-0 (Version None)
Quarter: 2010Q1

REPORT INFORMATION
  Report Type: 
  Country: None (occurrence: None)
  Receive Date: 20100303
  Receipt Date: 20100217
  Transmission Date: 20100710
  Serious: Yes (Hospitalization)
  Sender: FDA-Public Use
  Company Number: 008913

PATIENT
  Age: 83 Year
  Sex: Male

DRUGS (3)
  1. CILOSTAZOL [Suspect]
     Dosage: ORAL
     Route: 048
  2. ANTIHYPERTENSIVES [Suspect]
  3. OLMESARTAN MEDOXOMIL [Suspect]
     Indication: HYPERTENSION
     Dosage: ORAL
     Route: 048

REACTIONS (5)
  - CONDITION AGGRAVATED [None]
  - DRUG INTERACTION [None]
  - HYPOTENSION [None]
  - RENAL FAILURE [None]
  - SYNCOPE [None]
